FAERS Safety Report 25699697 (Version 2)
Quarter: 2025Q3

REPORT INFORMATION
  Report Type: Spontaneous
  Country: US (occurrence: US)
  Receive Date: 20250819
  Receipt Date: 20250822
  Transmission Date: 20251021
  Serious: Yes (Other)
  Sender: STALLERGENES
  Company Number: US-STALCOR-2025-AER-02251

PATIENT
  Age: 5 Year
  Sex: Male

DRUGS (3)
  1. PALFORZIA [Suspect]
     Active Substance: PEANUT
     Indication: Food allergy
     Dosage: REACTIVE DOSE AT LEVEL 7, 120MG
     Route: 048
     Dates: end: 20250625
  2. PALFORZIA [Suspect]
     Active Substance: PEANUT
     Dosage: IDE
     Route: 048
     Dates: start: 20250204, end: 20250625
  3. VITAMINS [Concomitant]
     Active Substance: VITAMINS
     Indication: Product used for unknown indication

REACTIONS (4)
  - Anxiety [Unknown]
  - Sensation of foreign body [Unknown]
  - Dysphagia [Recovering/Resolving]
  - Odynophagia [Recovering/Resolving]

NARRATIVE: CASE EVENT DATE: 20250501
